FAERS Safety Report 9391367 (Version 1)
Quarter: 2013Q3

REPORT INFORMATION
  Report Type: Spontaneous
  Country: FR (occurrence: FR)
  Receive Date: 20130709
  Receipt Date: 20130709
  Transmission Date: 20140515
  Serious: Yes (Other)
  Sender: FDA-Public Use
  Company Number: FR-ELI_LILLY_AND_COMPANY-FR201307001927

PATIENT
  Age: 62 Year
  Sex: Female

DRUGS (2)
  1. ZYPADHERA [Suspect]
     Indication: SCHIZOPHRENIA
     Dosage: 210 MG, 2/M
     Dates: start: 20110524, end: 20110926
  2. ZYPREXA [Suspect]
     Indication: SCHIZOPHRENIA
     Dosage: UNK
     Dates: end: 20111124

REACTIONS (7)
  - Dizziness [Recovered/Resolved]
  - VIIIth nerve lesion [Recovering/Resolving]
  - Nausea [Unknown]
  - Tremor [Unknown]
  - Decreased appetite [Unknown]
  - Asthenia [Recovered/Resolved]
  - Myalgia [Unknown]
